FAERS Safety Report 7285002-2 (Version None)
Quarter: 2011Q1

REPORT INFORMATION
  Report Type: 
  Country: None (occurrence: None)
  Receive Date: 20110204
  Receipt Date: 20110204
  Transmission Date: 20110831
  Serious: Yes (Hospitalization)
  Sender: FDA-Public Use
  Company Number: None

PATIENT
  Age: 73 Year
  Sex: Male
  Weight: 102.06 kg

DRUGS (2)
  1. SULFAMETHOXAZOLE AND TRIMETHOPRIM [Suspect]
     Indication: URINARY TRACT INFECTION
     Dosage: 1 TAB BID PO
     Route: 048
     Dates: start: 20110122, end: 20110126
  2. SULFAMETHOXAZOLE AND TRIMETHOPRIM [Suspect]
     Indication: BACTERAEMIA
     Dosage: 1 TAB BID PO
     Route: 048
     Dates: start: 20110122, end: 20110126

REACTIONS (1)
  - ANGIOEDEMA [None]
